FAERS Safety Report 8261260-2 (Version None)
Quarter: 2012Q2

REPORT INFORMATION
  Report Type: 
  Country: None (occurrence: None)
  Receive Date: 20120405
  Receipt Date: 20120328
  Transmission Date: 20120825
  Serious: Yes (Other)
  Sender: FDA-Public Use
  Company Number: US-JNJFOC-20120314213

PATIENT
  Sex: Female
  Weight: 54.43 kg

DRUGS (1)
  1. RISPERDAL CONSTA [Suspect]
     Indication: ACCIDENTAL EXPOSURE
     Route: 030

REACTIONS (2)
  - INJURY ASSOCIATED WITH DEVICE [None]
  - EXPOSURE TO CONTAMINATED DEVICE [None]
